FAERS Safety Report 7460857-7 (Version None)
Quarter: 2011Q2

REPORT INFORMATION
  Report Type: 
  Country: None (occurrence: None)
  Receive Date: 20110505
  Receipt Date: 20110503
  Transmission Date: 20111010
  Serious: Yes (Other)
  Sender: FDA-Public Use
  Company Number: US-PFIZER INC-2011095096

PATIENT
  Sex: Male
  Weight: 86.168 kg

DRUGS (3)
  1. ACETYLSALICYLIC ACID [Concomitant]
     Indication: ARTERIAL OCCLUSIVE DISEASE
     Dosage: UNK
     Route: 048
  2. CHANTIX [Suspect]
     Indication: SMOKING CESSATION THERAPY
     Dosage: 1 MG, 2X/DAY
     Route: 048
     Dates: start: 20110201, end: 20110425
  3. LOVASTATIN [Concomitant]
     Indication: BLOOD CHOLESTEROL INCREASED
     Dosage: UNK
     Route: 048

REACTIONS (10)
  - ANGER [None]
  - FRUSTRATION [None]
  - HAEMATOCHEZIA [None]
  - HYPERSOMNIA [None]
  - IRRITABILITY [None]
  - ABDOMINAL PAIN UPPER [None]
  - DEPRESSION [None]
  - MOOD ALTERED [None]
  - AGGRESSION [None]
  - WEIGHT INCREASED [None]
